FAERS Safety Report 6065744-7 (Version None)
Quarter: 2009Q1

REPORT INFORMATION
  Report Type: 
  Country: None (occurrence: None)
  Receive Date: 20090202
  Receipt Date: 20090114
  Transmission Date: 20090719
  Serious: Yes (Congenital Anomaly)
  Sender: FDA-Public Use
  Company Number: 8040803

PATIENT
  Sex: Female

DRUGS (3)
  1. KEPPRA [Suspect]
     Dosage: 1000 MG PO
     Route: 048
  2. FOLIC ACID [Concomitant]
  3. VITAMIN TAB [Concomitant]

REACTIONS (7)
  - ATRIAL PRESSURE INCREASED [None]
  - CARDIAC MURMUR [None]
  - CONGENITAL PULMONARY VALVE ATRESIA [None]
  - DRUG EXPOSURE VIA BREAST MILK [None]
  - ECHOCARDIOGRAM ABNORMAL [None]
  - MATERNAL DRUGS AFFECTING FOETUS [None]
  - PULMONARY VALVE STENOSIS CONGENITAL [None]
